FAERS Safety Report 23878769 (Version 6)
Quarter: 2025Q3

REPORT INFORMATION
  Report Type: Spontaneous
  Country: CA (occurrence: CA)
  Receive Date: 20240521
  Receipt Date: 20250904
  Transmission Date: 20251020
  Serious: Yes (Death, Life-Threatening, Hospitalization, Disabling, Congenital Anomaly, Other)
  Sender: Haleon PLC
  Company Number: CA-002147023-NVSC2023CA000963

PATIENT
  Age: 43 Year
  Sex: Female
  Weight: 68 kg

DRUGS (563)
  1. VOLTAREN [Suspect]
     Active Substance: DICLOFENAC SODIUM
     Indication: Product used for unknown indication
  2. GOLIMUMAB [Suspect]
     Active Substance: GOLIMUMAB
     Indication: Rheumatoid arthritis
  3. GOLIMUMAB [Suspect]
     Active Substance: GOLIMUMAB
     Indication: Prostatic specific antigen
  4. GOLIMUMAB [Suspect]
     Active Substance: GOLIMUMAB
     Indication: Product used for unknown indication
  5. ADALIMUMAB [Suspect]
     Active Substance: ADALIMUMAB
     Indication: Rheumatoid arthritis
     Route: 058
  6. ADALIMUMAB [Suspect]
     Active Substance: ADALIMUMAB
     Route: 058
  7. ADALIMUMAB [Suspect]
     Active Substance: ADALIMUMAB
     Route: 058
  8. ADALIMUMAB [Suspect]
     Active Substance: ADALIMUMAB
  9. ADALIMUMAB [Suspect]
     Active Substance: ADALIMUMAB
  10. ADALIMUMAB [Suspect]
     Active Substance: ADALIMUMAB
     Route: 058
  11. ACETAMINOPHEN [Concomitant]
     Active Substance: ACETAMINOPHEN
     Indication: Product used for unknown indication
  12. LEFLUNOMIDE [Suspect]
     Active Substance: LEFLUNOMIDE
     Indication: Rheumatoid arthritis
     Route: 048
  13. LEFLUNOMIDE [Suspect]
     Active Substance: LEFLUNOMIDE
     Indication: Product used for unknown indication
     Route: 048
  14. LEFLUNOMIDE [Suspect]
     Active Substance: LEFLUNOMIDE
  15. LEFLUNOMIDE [Suspect]
     Active Substance: LEFLUNOMIDE
     Route: 048
  16. LEFLUNOMIDE [Suspect]
     Active Substance: LEFLUNOMIDE
     Dosage: 10 MG, QD
  17. LEFLUNOMIDE [Suspect]
     Active Substance: LEFLUNOMIDE
     Dosage: 20 MG, QD
  18. LEFLUNOMIDE [Suspect]
     Active Substance: LEFLUNOMIDE
     Route: 048
  19. LEFLUNOMIDE [Suspect]
     Active Substance: LEFLUNOMIDE
     Dosage: 20 MG, QD
  20. LEFLUNOMIDE [Suspect]
     Active Substance: LEFLUNOMIDE
     Route: 048
  21. LEFLUNOMIDE [Suspect]
     Active Substance: LEFLUNOMIDE
     Dosage: 10 MG, QD
  22. LEFLUNOMIDE [Suspect]
     Active Substance: LEFLUNOMIDE
     Route: 048
  23. DICLOFENAC SODIUM [Suspect]
     Active Substance: DICLOFENAC SODIUM
     Indication: Product used for unknown indication
  24. DICLOFENAC SODIUM [Suspect]
     Active Substance: DICLOFENAC SODIUM
  25. DICLOFENAC SODIUM [Suspect]
     Active Substance: DICLOFENAC SODIUM
  26. DICLOFENAC SODIUM [Suspect]
     Active Substance: DICLOFENAC SODIUM
     Route: 058
  27. COSENTYX [Suspect]
     Active Substance: SECUKINUMAB
     Indication: Psoriatic arthropathy
  28. COSENTYX [Suspect]
     Active Substance: SECUKINUMAB
     Indication: Rheumatoid arthritis
  29. COSENTYX [Suspect]
     Active Substance: SECUKINUMAB
     Indication: Product used for unknown indication
  30. COSENTYX [Suspect]
     Active Substance: SECUKINUMAB
  31. COSENTYX [Suspect]
     Active Substance: SECUKINUMAB
  32. COSENTYX [Suspect]
     Active Substance: SECUKINUMAB
  33. COSENTYX [Suspect]
     Active Substance: SECUKINUMAB
  34. COSENTYX [Suspect]
     Active Substance: SECUKINUMAB
  35. COSENTYX [Suspect]
     Active Substance: SECUKINUMAB
  36. AIMOVIG [Suspect]
     Active Substance: ERENUMAB-AOOE
     Indication: Migraine
  37. AIMOVIG [Suspect]
     Active Substance: ERENUMAB-AOOE
  38. AIMOVIG [Suspect]
     Active Substance: ERENUMAB-AOOE
  39. DICLOFENAC POTASSIUM [Suspect]
     Active Substance: DICLOFENAC POTASSIUM
     Indication: Product used for unknown indication
  40. DICLOFENAC POTASSIUM [Suspect]
     Active Substance: DICLOFENAC POTASSIUM
  41. DICLOFENAC POTASSIUM [Suspect]
     Active Substance: DICLOFENAC POTASSIUM
  42. DICLOFENAC POTASSIUM [Suspect]
     Active Substance: DICLOFENAC POTASSIUM
  43. ERELZI [Suspect]
     Active Substance: ETANERCEPT-SZZS
     Indication: Rheumatoid arthritis
  44. ERELZI [Suspect]
     Active Substance: ETANERCEPT-SZZS
     Route: 058
  45. ERELZI [Suspect]
     Active Substance: ETANERCEPT-SZZS
  46. ERELZI [Suspect]
     Active Substance: ETANERCEPT-SZZS
     Route: 058
  47. ERELZI [Suspect]
     Active Substance: ETANERCEPT-SZZS
  48. ERELZI [Suspect]
     Active Substance: ETANERCEPT-SZZS
  49. ERELZI [Suspect]
     Active Substance: ETANERCEPT-SZZS
     Dosage: 50 MG, QW
     Route: 058
  50. FOLIC ACID [Suspect]
     Active Substance: FOLIC ACID
     Indication: Rheumatoid arthritis
     Route: 048
  51. FOLIC ACID [Suspect]
     Active Substance: FOLIC ACID
  52. FOLIC ACID [Suspect]
     Active Substance: FOLIC ACID
     Route: 058
  53. FOLIC ACID [Suspect]
     Active Substance: FOLIC ACID
  54. FOLIC ACID [Suspect]
     Active Substance: FOLIC ACID
     Route: 048
  55. FOLIC ACID [Suspect]
     Active Substance: FOLIC ACID
     Route: 048
  56. FOLIC ACID [Suspect]
     Active Substance: FOLIC ACID
  57. FOLIC ACID [Suspect]
     Active Substance: FOLIC ACID
  58. FOLIC ACID [Suspect]
     Active Substance: FOLIC ACID
  59. FOLIC ACID [Suspect]
     Active Substance: FOLIC ACID
  60. FOLIC ACID [Suspect]
     Active Substance: FOLIC ACID
  61. FOLIC ACID [Suspect]
     Active Substance: FOLIC ACID
  62. FOLIC ACID [Suspect]
     Active Substance: FOLIC ACID
  63. FOLIC ACID [Suspect]
     Active Substance: FOLIC ACID
  64. FOLIC ACID [Suspect]
     Active Substance: FOLIC ACID
  65. FOLIC ACID [Suspect]
     Active Substance: FOLIC ACID
     Route: 048
  66. FOLIC ACID [Suspect]
     Active Substance: FOLIC ACID
  67. QUETIAPINE FUMARATE [Suspect]
     Active Substance: QUETIAPINE FUMARATE
     Indication: Product used for unknown indication
  68. QUETIAPINE FUMARATE [Suspect]
     Active Substance: QUETIAPINE FUMARATE
  69. QUETIAPINE FUMARATE [Suspect]
     Active Substance: QUETIAPINE FUMARATE
  70. QUETIAPINE FUMARATE [Suspect]
     Active Substance: QUETIAPINE FUMARATE
  71. MYCOPHENOLATE MOFETIL [Suspect]
     Active Substance: MYCOPHENOLATE MOFETIL
     Indication: Product used for unknown indication
  72. MYCOPHENOLATE MOFETIL [Suspect]
     Active Substance: MYCOPHENOLATE MOFETIL
  73. MYCOPHENOLATE MOFETIL [Suspect]
     Active Substance: MYCOPHENOLATE MOFETIL
  74. MYCOPHENOLATE MOFETIL [Suspect]
     Active Substance: MYCOPHENOLATE MOFETIL
  75. ALENDRONATE SODIUM [Suspect]
     Active Substance: ALENDRONATE SODIUM
     Indication: Rheumatoid arthritis
     Route: 048
  76. ALENDRONATE SODIUM [Suspect]
     Active Substance: ALENDRONATE SODIUM
  77. ALENDRONATE SODIUM [Suspect]
     Active Substance: ALENDRONATE SODIUM
     Route: 048
  78. ERELZI [Concomitant]
     Active Substance: ETANERCEPT-SZZS
     Indication: Product used for unknown indication
  79. ERELZI [Concomitant]
     Active Substance: ETANERCEPT-SZZS
     Indication: Rheumatoid arthritis
  80. ERELZI [Concomitant]
     Active Substance: ETANERCEPT-SZZS
  81. COSENTYX [Concomitant]
     Active Substance: SECUKINUMAB
     Indication: Product used for unknown indication
  82. HYRIMOZ [Suspect]
     Active Substance: ADALIMUMAB-ADAZ
     Indication: Rheumatoid arthritis
  83. HYRIMOZ [Suspect]
     Active Substance: ADALIMUMAB-ADAZ
     Indication: Product used for unknown indication
  84. HYRIMOZ [Suspect]
     Active Substance: ADALIMUMAB-ADAZ
     Route: 050
  85. HYRIMOZ [Suspect]
     Active Substance: ADALIMUMAB-ADAZ
     Route: 058
  86. HYRIMOZ [Suspect]
     Active Substance: ADALIMUMAB-ADAZ
  87. HYRIMOZ [Suspect]
     Active Substance: ADALIMUMAB-ADAZ
  88. HYRIMOZ [Suspect]
     Active Substance: ADALIMUMAB-ADAZ
     Route: 058
  89. HYRIMOZ [Suspect]
     Active Substance: ADALIMUMAB-ADAZ
  90. RITUXIMAB [Suspect]
     Active Substance: RITUXIMAB
     Indication: Rheumatoid arthritis
     Route: 042
  91. RITUXIMAB [Suspect]
     Active Substance: RITUXIMAB
     Route: 058
  92. RITUXIMAB [Suspect]
     Active Substance: RITUXIMAB
  93. RITUXIMAB [Suspect]
     Active Substance: RITUXIMAB
     Route: 042
  94. RITUXIMAB [Suspect]
     Active Substance: RITUXIMAB
  95. RITUXIMAB [Suspect]
     Active Substance: RITUXIMAB
     Route: 050
  96. RITUXIMAB [Suspect]
     Active Substance: RITUXIMAB
  97. RITUXIMAB [Suspect]
     Active Substance: RITUXIMAB
     Route: 042
  98. RITUXIMAB [Suspect]
     Active Substance: RITUXIMAB
     Route: 042
  99. RITUXIMAB [Suspect]
     Active Substance: RITUXIMAB
  100. RITUXIMAB [Suspect]
     Active Substance: RITUXIMAB
     Dosage: DURATION 5 MONTHS
  101. RITUXIMAB [Suspect]
     Active Substance: RITUXIMAB
  102. RITUXIMAB [Suspect]
     Active Substance: RITUXIMAB
     Dosage: 2 G, QD
     Route: 042
  103. RITUXIMAB [Suspect]
     Active Substance: RITUXIMAB
  104. RITUXIMAB [Suspect]
     Active Substance: RITUXIMAB
     Route: 042
  105. ATOMOXETINE [Suspect]
     Active Substance: ATOMOXETINE
     Indication: Migraine
     Dosage: 1 DOSAGE FORM, QD (1 EVERY 1 DAY)
  106. ATOMOXETINE [Suspect]
     Active Substance: ATOMOXETINE
  107. ATOMOXETINE [Suspect]
     Active Substance: ATOMOXETINE
     Dosage: 1 DOSAGE FORM, QD (1 EVERY 1 DAY)
  108. HYDROCORTISONE [Suspect]
     Active Substance: HYDROCORTISONE
     Indication: Rheumatoid arthritis
  109. METHOTREXATE [Suspect]
     Active Substance: METHOTREXATE
     Indication: Rheumatoid arthritis
  110. METHOTREXATE [Suspect]
     Active Substance: METHOTREXATE
     Indication: Psoriatic arthropathy
     Dosage: 25 MG, QW
     Route: 048
  111. METHOTREXATE [Suspect]
     Active Substance: METHOTREXATE
     Dosage: 20 MG, QD
     Route: 048
  112. METHOTREXATE [Suspect]
     Active Substance: METHOTREXATE
     Dosage: 1 G
     Route: 048
  113. METHOTREXATE [Suspect]
     Active Substance: METHOTREXATE
     Dosage: 25 MG
     Route: 048
  114. METHOTREXATE [Suspect]
     Active Substance: METHOTREXATE
     Dosage: ROA: INTRA-ARTERIAL
  115. METHOTREXATE [Suspect]
     Active Substance: METHOTREXATE
     Dosage: DURATION 4015 DAYS
     Route: 048
  116. METHOTREXATE [Suspect]
     Active Substance: METHOTREXATE
     Dosage: UNK, QW
     Route: 048
  117. METHOTREXATE [Suspect]
     Active Substance: METHOTREXATE
     Route: 050
  118. METHOTREXATE [Suspect]
     Active Substance: METHOTREXATE
  119. METHOTREXATE [Suspect]
     Active Substance: METHOTREXATE
     Dosage: 25 MG, QW
     Route: 058
  120. METHOTREXATE [Suspect]
     Active Substance: METHOTREXATE
     Dosage: 20 MG, QW
  121. METHOTREXATE [Suspect]
     Active Substance: METHOTREXATE
     Dosage: 1 DOSAGE FORM, QD
     Route: 048
  122. METHOTREXATE [Suspect]
     Active Substance: METHOTREXATE
     Dosage: 15 MG, QW
     Route: 048
  123. METHOTREXATE [Suspect]
     Active Substance: METHOTREXATE
     Dosage: 1 G, Q12H
     Route: 048
  124. METHOTREXATE [Suspect]
     Active Substance: METHOTREXATE
     Dosage: 1 G, Q24H
     Route: 048
  125. METHOTREXATE [Suspect]
     Active Substance: METHOTREXATE
     Route: 048
  126. METHOTREXATE [Suspect]
     Active Substance: METHOTREXATE
     Dosage: 2 DOSAGE FORM, Q24H
     Route: 048
  127. METHOTREXATE [Suspect]
     Active Substance: METHOTREXATE
     Dosage: ROA: INTRA-ARTERIAL
  128. METHOTREXATE [Suspect]
     Active Substance: METHOTREXATE
  129. METHOTREXATE [Suspect]
     Active Substance: METHOTREXATE
     Dosage: 20 MG, Q24H
     Route: 048
  130. METHOTREXATE [Suspect]
     Active Substance: METHOTREXATE
     Dosage: ROA: INTRA-ARTICULAR
  131. METHOTREXATE [Suspect]
     Active Substance: METHOTREXATE
  132. METHOTREXATE [Suspect]
     Active Substance: METHOTREXATE
     Route: 058
  133. METHOTREXATE [Suspect]
     Active Substance: METHOTREXATE
     Dosage: ROA: INTRA-ARTERIAL
  134. METHOTREXATE [Suspect]
     Active Substance: METHOTREXATE
     Dosage: 1 G, Q24H
     Route: 048
  135. METHOTREXATE [Suspect]
     Active Substance: METHOTREXATE
  136. METHOTREXATE [Suspect]
     Active Substance: METHOTREXATE
     Route: 048
  137. METHOTREXATE [Suspect]
     Active Substance: METHOTREXATE
     Dosage: 15 MG, Q12H
     Route: 048
  138. METHOTREXATE [Suspect]
     Active Substance: METHOTREXATE
     Dosage: 20 MG, QW
     Route: 048
  139. METHOTREXATE [Suspect]
     Active Substance: METHOTREXATE
     Route: 048
  140. METHOTREXATE [Suspect]
     Active Substance: METHOTREXATE
  141. METHOTREXATE [Suspect]
     Active Substance: METHOTREXATE
     Route: 048
  142. METHOTREXATE [Suspect]
     Active Substance: METHOTREXATE
     Dosage: 25 MG, BID
     Route: 050
  143. METHOTREXATE [Suspect]
     Active Substance: METHOTREXATE
     Route: 048
  144. METHOTREXATE [Suspect]
     Active Substance: METHOTREXATE
     Route: 048
  145. METHOTREXATE [Suspect]
     Active Substance: METHOTREXATE
     Dosage: 1 G, BID
     Route: 050
  146. METHOTREXATE [Suspect]
     Active Substance: METHOTREXATE
  147. OXYCODONE HYDROCHLORIDE [Suspect]
     Active Substance: OXYCODONE HYDROCHLORIDE
     Indication: Product used for unknown indication
  148. OXYCODONE HYDROCHLORIDE [Suspect]
     Active Substance: OXYCODONE HYDROCHLORIDE
  149. OXYCODONE HYDROCHLORIDE [Suspect]
     Active Substance: OXYCODONE HYDROCHLORIDE
  150. OXYCODONE HYDROCHLORIDE [Suspect]
     Active Substance: OXYCODONE HYDROCHLORIDE
  151. OXYCODONE HYDROCHLORIDE [Suspect]
     Active Substance: OXYCODONE HYDROCHLORIDE
  152. PREGABALIN [Suspect]
     Active Substance: PREGABALIN
     Indication: Fibromyalgia
  153. PREGABALIN [Suspect]
     Active Substance: PREGABALIN
  154. PANTOPRAZOLE [Suspect]
     Active Substance: PANTOPRAZOLE
     Indication: Dyspepsia
  155. PANTOPRAZOLE [Suspect]
     Active Substance: PANTOPRAZOLE
  156. PREDNISONE [Suspect]
     Active Substance: PREDNISONE
     Indication: Rheumatoid arthritis
  157. PREDNISONE [Suspect]
     Active Substance: PREDNISONE
     Indication: Condition aggravated
  158. PREDNISONE [Suspect]
     Active Substance: PREDNISONE
     Route: 048
  159. PREDNISONE [Suspect]
     Active Substance: PREDNISONE
  160. PREDNISONE [Suspect]
     Active Substance: PREDNISONE
     Dosage: UNK UNK, QD
  161. PREDNISONE [Suspect]
     Active Substance: PREDNISONE
     Dosage: 50 MG, QD
     Route: 048
  162. PREDNISONE [Suspect]
     Active Substance: PREDNISONE
     Route: 048
  163. PREDNISONE [Suspect]
     Active Substance: PREDNISONE
  164. PREDNISONE [Suspect]
     Active Substance: PREDNISONE
     Route: 048
  165. PSEUDOEPHEDRINE HYDROCHLORIDE [Suspect]
     Active Substance: PSEUDOEPHEDRINE HYDROCHLORIDE
     Indication: Rheumatoid arthritis
  166. PSEUDOEPHEDRINE HYDROCHLORIDE [Suspect]
     Active Substance: PSEUDOEPHEDRINE HYDROCHLORIDE
  167. PSEUDOEPHEDRINE HYDROCHLORIDE [Suspect]
     Active Substance: PSEUDOEPHEDRINE HYDROCHLORIDE
  168. PSEUDOEPHEDRINE HYDROCHLORIDE [Suspect]
     Active Substance: PSEUDOEPHEDRINE HYDROCHLORIDE
  169. REMICADE [Suspect]
     Active Substance: INFLIXIMAB
     Indication: Rheumatoid arthritis
     Dosage: DOSE FORM: SOLUTION FOR INFUSION
     Route: 042
  170. REMICADE [Suspect]
     Active Substance: INFLIXIMAB
     Route: 042
  171. REMICADE [Suspect]
     Active Substance: INFLIXIMAB
     Route: 042
  172. REMICADE [Suspect]
     Active Substance: INFLIXIMAB
     Route: 042
  173. REMICADE [Suspect]
     Active Substance: INFLIXIMAB
     Route: 042
  174. SULFASALAZINE [Suspect]
     Active Substance: SULFASALAZINE
     Indication: Rheumatoid arthritis
  175. SIMPONI [Suspect]
     Active Substance: GOLIMUMAB
     Indication: Rheumatoid arthritis
  176. SIMPONI [Suspect]
     Active Substance: GOLIMUMAB
     Indication: Prostatic specific antigen
     Dosage: DURATION 334 DAYS
     Route: 050
  177. SIMPONI [Suspect]
     Active Substance: GOLIMUMAB
     Route: 050
  178. SIMPONI [Suspect]
     Active Substance: GOLIMUMAB
     Route: 058
  179. SIMPONI [Suspect]
     Active Substance: GOLIMUMAB
  180. SIMPONI [Suspect]
     Active Substance: GOLIMUMAB
  181. SIMPONI [Suspect]
     Active Substance: GOLIMUMAB
  182. SIMPONI [Suspect]
     Active Substance: GOLIMUMAB
  183. SIRUKUMAB [Suspect]
     Active Substance: SIRUKUMAB
     Indication: Product used for unknown indication
  184. GOLD SODIUM THIOMALATE [Suspect]
     Active Substance: GOLD SODIUM THIOMALATE
     Indication: Product used for unknown indication
     Route: 050
  185. GOLD SODIUM THIOMALATE [Suspect]
     Active Substance: GOLD SODIUM THIOMALATE
  186. GOLD SODIUM THIOMALATE [Suspect]
     Active Substance: GOLD SODIUM THIOMALATE
     Route: 048
  187. SULFAMETHOXAZOLE AND TRIMETHOPRIM [Suspect]
     Active Substance: SULFAMETHOXAZOLE\TRIMETHOPRIM
     Indication: Product used for unknown indication
  188. SULFASALAZINE [Suspect]
     Active Substance: SULFASALAZINE
     Indication: Rheumatoid arthritis
     Dosage: 1000 MG
     Route: 048
  189. SULFASALAZINE [Suspect]
     Active Substance: SULFASALAZINE
  190. SULFASALAZINE [Suspect]
     Active Substance: SULFASALAZINE
  191. SULFASALAZINE [Suspect]
     Active Substance: SULFASALAZINE
     Dosage: 300 MG, QD
  192. SULFASALAZINE [Suspect]
     Active Substance: SULFASALAZINE
     Dosage: 1 DOSAGE FORM, BID
     Route: 048
  193. SULFASALAZINE [Suspect]
     Active Substance: SULFASALAZINE
     Dosage: 1 G, QD
     Route: 058
  194. SULFASALAZINE [Suspect]
     Active Substance: SULFASALAZINE
  195. SULFASALAZINE [Suspect]
     Active Substance: SULFASALAZINE
  196. SULFASALAZINE [Suspect]
     Active Substance: SULFASALAZINE
     Route: 048
  197. SULFASALAZINE [Suspect]
     Active Substance: SULFASALAZINE
     Dosage: 1 G, QD
     Route: 058
  198. SULFASALAZINE [Suspect]
     Active Substance: SULFASALAZINE
  199. SULFASALAZINE [Suspect]
     Active Substance: SULFASALAZINE
     Route: 048
  200. SULFASALAZINE [Suspect]
     Active Substance: SULFASALAZINE
     Dosage: 1 DOSAGE FORM
  201. SULFASALAZINE [Suspect]
     Active Substance: SULFASALAZINE
     Dosage: 1 G
     Route: 048
  202. SULFASALAZINE [Suspect]
     Active Substance: SULFASALAZINE
     Dosage: 1 G, BID
     Route: 048
  203. SULFASALAZINE [Suspect]
     Active Substance: SULFASALAZINE
     Route: 050
  204. SULFASALAZINE [Suspect]
     Active Substance: SULFASALAZINE
     Route: 048
  205. SULFASALAZINE [Suspect]
     Active Substance: SULFASALAZINE
     Dosage: 2 G, QD
     Route: 050
  206. SULFASALAZINE [Suspect]
     Active Substance: SULFASALAZINE
  207. SULFASALAZINE [Suspect]
     Active Substance: SULFASALAZINE
     Route: 050
  208. SULFASALAZINE [Suspect]
     Active Substance: SULFASALAZINE
     Dosage: 1 DOSAGE FORM, BID
  209. SULFASALAZINE [Suspect]
     Active Substance: SULFASALAZINE
     Dosage: UNK, QD
     Route: 050
  210. SULFASALAZINE [Suspect]
     Active Substance: SULFASALAZINE
  211. SULFASALAZINE [Suspect]
     Active Substance: SULFASALAZINE
     Route: 050
  212. SULFASALAZINE [Suspect]
     Active Substance: SULFASALAZINE
     Route: 050
  213. SULFASALAZINE [Suspect]
     Active Substance: SULFASALAZINE
     Route: 050
  214. SULFASALAZINE [Suspect]
     Active Substance: SULFASALAZINE
     Route: 050
  215. SULFASALAZINE [Suspect]
     Active Substance: SULFASALAZINE
  216. SULFASALAZINE [Suspect]
     Active Substance: SULFASALAZINE
     Dosage: 5 MG, QW
     Route: 050
  217. SULFASALAZINE [Suspect]
     Active Substance: SULFASALAZINE
     Dosage: 2 G, QD
     Route: 050
  218. SULFASALAZINE [Suspect]
     Active Substance: SULFASALAZINE
     Dosage: 1000 MG, BID
     Route: 050
  219. SULFASALAZINE [Suspect]
     Active Substance: SULFASALAZINE
     Route: 050
  220. SULFASALAZINE [Suspect]
     Active Substance: SULFASALAZINE
     Route: 050
  221. SULFASALAZINE [Suspect]
     Active Substance: SULFASALAZINE
     Dosage: 1000 MG, BID
     Route: 050
  222. SULFASALAZINE [Suspect]
     Active Substance: SULFASALAZINE
     Dosage: 1 DOSAGE FORM, BID
     Route: 050
  223. SULFASALAZINE [Suspect]
     Active Substance: SULFASALAZINE
  224. SULFASALAZINE [Suspect]
     Active Substance: SULFASALAZINE
     Route: 050
  225. SULFASALAZINE [Suspect]
     Active Substance: SULFASALAZINE
     Route: 050
  226. SULFASALAZINE [Suspect]
     Active Substance: SULFASALAZINE
     Route: 050
  227. SULFASALAZINE [Suspect]
     Active Substance: SULFASALAZINE
     Route: 050
  228. SULFASALAZINE [Suspect]
     Active Substance: SULFASALAZINE
     Route: 050
  229. SULFASALAZINE [Suspect]
     Active Substance: SULFASALAZINE
     Route: 050
  230. SULFASALAZINE [Suspect]
     Active Substance: SULFASALAZINE
     Route: 050
  231. SULFASALAZINE [Suspect]
     Active Substance: SULFASALAZINE
  232. SULFASALAZINE [Suspect]
     Active Substance: SULFASALAZINE
     Dosage: 1 DOSAGE FORM, BID
     Route: 050
  233. SULFASALAZINE [Suspect]
     Active Substance: SULFASALAZINE
     Route: 050
  234. TOCILIZUMAB [Suspect]
     Active Substance: TOCILIZUMAB
     Indication: Rheumatoid arthritis
     Route: 058
  235. TOCILIZUMAB [Suspect]
     Active Substance: TOCILIZUMAB
     Route: 042
  236. TOCILIZUMAB [Suspect]
     Active Substance: TOCILIZUMAB
     Route: 042
  237. TOCILIZUMAB [Suspect]
     Active Substance: TOCILIZUMAB
     Route: 058
  238. TOCILIZUMAB [Suspect]
     Active Substance: TOCILIZUMAB
  239. TOFACITINIB [Suspect]
     Active Substance: TOFACITINIB
     Indication: Rheumatoid arthritis
     Dosage: 5 MG, BID
  240. TOFACITINIB [Suspect]
     Active Substance: TOFACITINIB
  241. TRAMADOL HYDROCHLORIDE [Suspect]
     Active Substance: TRAMADOL HYDROCHLORIDE
     Indication: Product used for unknown indication
  242. XELJANZ [Suspect]
     Active Substance: TOFACITINIB CITRATE
     Indication: Rheumatoid arthritis
  243. XELJANZ [Suspect]
     Active Substance: TOFACITINIB CITRATE
     Route: 048
  244. XELJANZ [Suspect]
     Active Substance: TOFACITINIB CITRATE
     Dosage: 20 MG, QD
  245. XELJANZ [Suspect]
     Active Substance: TOFACITINIB CITRATE
  246. XELJANZ [Suspect]
     Active Substance: TOFACITINIB CITRATE
  247. XELJANZ [Suspect]
     Active Substance: TOFACITINIB CITRATE
     Dosage: 5 MG
     Route: 050
  248. XELJANZ [Suspect]
     Active Substance: TOFACITINIB CITRATE
  249. XELJANZ [Suspect]
     Active Substance: TOFACITINIB CITRATE
     Dosage: 5 MG, QD
     Route: 050
  250. XELJANZ [Suspect]
     Active Substance: TOFACITINIB CITRATE
     Dosage: 10 MG, QD
     Route: 048
  251. XELJANZ [Suspect]
     Active Substance: TOFACITINIB CITRATE
     Route: 050
  252. XELJANZ [Suspect]
     Active Substance: TOFACITINIB CITRATE
     Dosage: 5 MG, BID
  253. XELJANZ [Suspect]
     Active Substance: TOFACITINIB CITRATE
  254. XELJANZ [Suspect]
     Active Substance: TOFACITINIB CITRATE
  255. XELJANZ [Suspect]
     Active Substance: TOFACITINIB CITRATE
  256. XELJANZ [Suspect]
     Active Substance: TOFACITINIB CITRATE
  257. XELJANZ [Suspect]
     Active Substance: TOFACITINIB CITRATE
  258. XELJANZ [Suspect]
     Active Substance: TOFACITINIB CITRATE
  259. XELJANZ [Suspect]
     Active Substance: TOFACITINIB CITRATE
     Route: 050
  260. VOLTAREN [Suspect]
     Active Substance: DICLOFENAC SODIUM
     Indication: Product used for unknown indication
  261. ALENDRONIC ACID [Suspect]
     Active Substance: ALENDRONIC ACID
     Indication: Rheumatoid arthritis
     Route: 050
  262. ALENDRONIC ACID [Suspect]
     Active Substance: ALENDRONIC ACID
  263. ALENDRONIC ACID [Suspect]
     Active Substance: ALENDRONIC ACID
  264. ALENDRONIC ACID [Suspect]
     Active Substance: ALENDRONIC ACID
     Route: 048
  265. CANDESARTAN [Suspect]
     Active Substance: CANDESARTAN
     Indication: Migraine
  266. CANDESARTAN [Suspect]
     Active Substance: CANDESARTAN
     Route: 048
  267. CANDESARTAN [Suspect]
     Active Substance: CANDESARTAN
  268. ACETAMINOPHEN\TRAMADOL HYDROCHLORIDE [Suspect]
     Active Substance: ACETAMINOPHEN\TRAMADOL HYDROCHLORIDE
     Indication: Product used for unknown indication
  269. ACTEMRA [Suspect]
     Active Substance: TOCILIZUMAB
     Indication: Rheumatoid arthritis
     Route: 042
  270. ACTEMRA [Suspect]
     Active Substance: TOCILIZUMAB
     Route: 042
  271. ACTEMRA [Suspect]
     Active Substance: TOCILIZUMAB
     Route: 050
  272. ACTEMRA [Suspect]
     Active Substance: TOCILIZUMAB
  273. ACTEMRA [Suspect]
     Active Substance: TOCILIZUMAB
     Route: 050
  274. ACTEMRA [Suspect]
     Active Substance: TOCILIZUMAB
     Route: 058
  275. ACTEMRA [Suspect]
     Active Substance: TOCILIZUMAB
     Dosage: DOSE FORM: SOLUTION FOR INJECTION IN PRE-FILLED SYRINGE
     Route: 058
  276. ACTEMRA [Suspect]
     Active Substance: TOCILIZUMAB
     Route: 058
  277. ACTEMRA [Suspect]
     Active Substance: TOCILIZUMAB
     Route: 042
  278. ACTEMRA [Suspect]
     Active Substance: TOCILIZUMAB
     Route: 042
  279. ACTEMRA [Suspect]
     Active Substance: TOCILIZUMAB
  280. ACTEMRA [Suspect]
     Active Substance: TOCILIZUMAB
  281. ACTEMRA [Suspect]
     Active Substance: TOCILIZUMAB
  282. ACTEMRA [Suspect]
     Active Substance: TOCILIZUMAB
     Route: 058
  283. ACTEMRA [Suspect]
     Active Substance: TOCILIZUMAB
     Route: 042
  284. ACTEMRA [Suspect]
     Active Substance: TOCILIZUMAB
     Route: 042
  285. ACTEMRA [Suspect]
     Active Substance: TOCILIZUMAB
     Route: 042
  286. ACTEMRA [Suspect]
     Active Substance: TOCILIZUMAB
  287. ACTEMRA [Suspect]
     Active Substance: TOCILIZUMAB
  288. ACTEMRA [Suspect]
     Active Substance: TOCILIZUMAB
  289. ACTEMRA [Suspect]
     Active Substance: TOCILIZUMAB
  290. ACTEMRA [Suspect]
     Active Substance: TOCILIZUMAB
  291. ACTEMRA [Suspect]
     Active Substance: TOCILIZUMAB
     Route: 058
  292. LEFLUNOMIDE [Suspect]
     Active Substance: LEFLUNOMIDE
     Indication: Product used for unknown indication
  293. ARAVA [Suspect]
     Active Substance: LEFLUNOMIDE
     Indication: Rheumatoid arthritis
     Dosage: 20 MG, QD
     Route: 048
  294. ARAVA [Suspect]
     Active Substance: LEFLUNOMIDE
     Route: 050
  295. ARAVA [Suspect]
     Active Substance: LEFLUNOMIDE
     Route: 048
  296. ARAVA [Suspect]
     Active Substance: LEFLUNOMIDE
     Route: 048
  297. ARAVA [Suspect]
     Active Substance: LEFLUNOMIDE
     Route: 050
  298. ARAVA [Suspect]
     Active Substance: LEFLUNOMIDE
     Route: 050
  299. ARAVA [Suspect]
     Active Substance: LEFLUNOMIDE
     Route: 050
  300. ARAVA [Suspect]
     Active Substance: LEFLUNOMIDE
  301. PREDNISONE [Suspect]
     Active Substance: PREDNISONE
     Indication: Rheumatoid arthritis
  302. PREDNISONE [Suspect]
     Active Substance: PREDNISONE
     Indication: Product used for unknown indication
     Dosage: UNK, QD
     Route: 048
  303. PREDNISONE [Suspect]
     Active Substance: PREDNISONE
     Dosage: UNK, QD
     Route: 048
  304. PREDNISONE [Suspect]
     Active Substance: PREDNISONE
     Dosage: 20 MG, QD
     Route: 048
  305. PREDNISONE [Suspect]
     Active Substance: PREDNISONE
     Route: 048
  306. PREDNISONE [Suspect]
     Active Substance: PREDNISONE
  307. PREDNISONE [Suspect]
     Active Substance: PREDNISONE
  308. PREDNISONE [Suspect]
     Active Substance: PREDNISONE
  309. PREDNISONE [Suspect]
     Active Substance: PREDNISONE
     Route: 048
  310. PREDNISONE [Suspect]
     Active Substance: PREDNISONE
     Route: 048
  311. PREDNISONE [Suspect]
     Active Substance: PREDNISONE
  312. AZATHIOPRINE [Suspect]
     Active Substance: AZATHIOPRINE
     Indication: Product used for unknown indication
  313. BERINERT [Suspect]
     Active Substance: HUMAN C1-ESTERASE INHIBITOR
     Indication: Product used for unknown indication
  314. CERTOLIZUMAB PEGOL [Suspect]
     Active Substance: CERTOLIZUMAB PEGOL
     Indication: Rheumatoid arthritis
  315. CERTOLIZUMAB PEGOL [Suspect]
     Active Substance: CERTOLIZUMAB PEGOL
     Indication: Psoriasis
     Route: 058
  316. CERTOLIZUMAB PEGOL [Suspect]
     Active Substance: CERTOLIZUMAB PEGOL
     Route: 050
  317. CERTOLIZUMAB PEGOL [Suspect]
     Active Substance: CERTOLIZUMAB PEGOL
     Route: 050
  318. CETIRIZINE HYDROCHLORIDE [Suspect]
     Active Substance: CETIRIZINE HYDROCHLORIDE
     Indication: Rheumatoid arthritis
  319. CETIRIZINE HYDROCHLORIDE [Suspect]
     Active Substance: CETIRIZINE HYDROCHLORIDE
     Indication: Off label use
     Dosage: DOSE FORM: PROLONGED-RELEASE TABLET
  320. CETIRIZINE HYDROCHLORIDE [Suspect]
     Active Substance: CETIRIZINE HYDROCHLORIDE
  321. CETIRIZINE HYDROCHLORIDE [Suspect]
     Active Substance: CETIRIZINE HYDROCHLORIDE
  322. CETIRIZINE HYDROCHLORIDE [Suspect]
     Active Substance: CETIRIZINE HYDROCHLORIDE
  323. CETIRIZINE HYDROCHLORIDE [Suspect]
     Active Substance: CETIRIZINE HYDROCHLORIDE
  324. CETIRIZINE HYDROCHLORIDE [Suspect]
     Active Substance: CETIRIZINE HYDROCHLORIDE
  325. CETIRIZINE HYDROCHLORIDE [Suspect]
     Active Substance: CETIRIZINE HYDROCHLORIDE
  326. CETIRIZINE HYDROCHLORIDE [Suspect]
     Active Substance: CETIRIZINE HYDROCHLORIDE
  327. CETIRIZINE HYDROCHLORIDE [Suspect]
     Active Substance: CETIRIZINE HYDROCHLORIDE
  328. CETIRIZINE HYDROCHLORIDE [Suspect]
     Active Substance: CETIRIZINE HYDROCHLORIDE
  329. CETIRIZINE HYDROCHLORIDE [Suspect]
     Active Substance: CETIRIZINE HYDROCHLORIDE
  330. CETIRIZINE HYDROCHLORIDE [Suspect]
     Active Substance: CETIRIZINE HYDROCHLORIDE
  331. CETIRIZINE HYDROCHLORIDE [Suspect]
     Active Substance: CETIRIZINE HYDROCHLORIDE
  332. CETIRIZINE HYDROCHLORIDE [Suspect]
     Active Substance: CETIRIZINE HYDROCHLORIDE
     Route: 050
  333. CETIRIZINE HYDROCHLORIDE [Suspect]
     Active Substance: CETIRIZINE HYDROCHLORIDE
     Dosage: 10 MG, QD
     Route: 050
  334. CETIRIZINE HYDROCHLORIDE [Suspect]
     Active Substance: CETIRIZINE HYDROCHLORIDE
  335. CETIRIZINE HYDROCHLORIDE [Suspect]
     Active Substance: CETIRIZINE HYDROCHLORIDE
     Route: 050
  336. CETIRIZINE HYDROCHLORIDE [Suspect]
     Active Substance: CETIRIZINE HYDROCHLORIDE
  337. CETIRIZINE HYDROCHLORIDE [Suspect]
     Active Substance: CETIRIZINE HYDROCHLORIDE
     Route: 050
  338. CETIRIZINE HYDROCHLORIDE [Suspect]
     Active Substance: CETIRIZINE HYDROCHLORIDE
     Route: 050
  339. CETIRIZINE HYDROCHLORIDE [Suspect]
     Active Substance: CETIRIZINE HYDROCHLORIDE
  340. CETIRIZINE HYDROCHLORIDE [Suspect]
     Active Substance: CETIRIZINE HYDROCHLORIDE
  341. CETIRIZINE HYDROCHLORIDE [Suspect]
     Active Substance: CETIRIZINE HYDROCHLORIDE
  342. CIMZIA [Suspect]
     Active Substance: CERTOLIZUMAB PEGOL
     Indication: Rheumatoid arthritis
     Dosage: DOSE FORM: SOLUTION FOR INJECTION IN PRE-FILLED SYRINGE
     Route: 058
  343. CIMZIA [Suspect]
     Active Substance: CERTOLIZUMAB PEGOL
     Indication: Psoriasis
     Route: 058
  344. CIMZIA [Suspect]
     Active Substance: CERTOLIZUMAB PEGOL
     Route: 058
  345. CIMZIA [Suspect]
     Active Substance: CERTOLIZUMAB PEGOL
     Route: 050
  346. CIMZIA [Suspect]
     Active Substance: CERTOLIZUMAB PEGOL
     Route: 058
  347. CIMZIA [Suspect]
     Active Substance: CERTOLIZUMAB PEGOL
     Route: 050
  348. CIMZIA [Suspect]
     Active Substance: CERTOLIZUMAB PEGOL
  349. CIMZIA [Suspect]
     Active Substance: CERTOLIZUMAB PEGOL
     Route: 050
  350. CIMZIA [Suspect]
     Active Substance: CERTOLIZUMAB PEGOL
  351. CIMZIA [Suspect]
     Active Substance: CERTOLIZUMAB PEGOL
     Route: 050
  352. CIMZIA [Suspect]
     Active Substance: CERTOLIZUMAB PEGOL
     Route: 050
  353. CIMZIA [Suspect]
     Active Substance: CERTOLIZUMAB PEGOL
     Route: 050
  354. CIMZIA [Suspect]
     Active Substance: CERTOLIZUMAB PEGOL
     Route: 050
  355. CIMZIA [Suspect]
     Active Substance: CERTOLIZUMAB PEGOL
  356. CIMZIA [Suspect]
     Active Substance: CERTOLIZUMAB PEGOL
  357. CORTISONE ACETATE [Suspect]
     Active Substance: CORTISONE ACETATE
     Indication: Rheumatoid arthritis
  358. CORTISONE ACETATE [Suspect]
     Active Substance: CORTISONE ACETATE
  359. CORTISONE ACETATE [Suspect]
     Active Substance: CORTISONE ACETATE
     Route: 048
  360. CORTISONE ACETATE [Suspect]
     Active Substance: CORTISONE ACETATE
  361. CORTISONE ACETATE [Suspect]
     Active Substance: CORTISONE ACETATE
  362. CORTISONE ACETATE [Suspect]
     Active Substance: CORTISONE ACETATE
     Route: 050
  363. CORTISONE ACETATE [Suspect]
     Active Substance: CORTISONE ACETATE
  364. CORTISONE ACETATE [Suspect]
     Active Substance: CORTISONE ACETATE
     Route: 050
  365. CORTISONE ACETATE [Suspect]
     Active Substance: CORTISONE ACETATE
  366. DESOGESTREL AND ETHINYL ESTRADIOL [Suspect]
     Active Substance: DESOGESTREL\ETHINYL ESTRADIOL
     Indication: Product used for unknown indication
  367. DESOXIMETASONE [Suspect]
     Active Substance: DESOXIMETASONE
     Indication: Rheumatoid arthritis
     Route: 050
  368. DESOXIMETASONE [Suspect]
     Active Substance: DESOXIMETASONE
     Route: 058
  369. DESOXIMETASONE [Suspect]
     Active Substance: DESOXIMETASONE
  370. DESOXIMETASONE [Suspect]
     Active Substance: DESOXIMETASONE
     Route: 048
  371. DESOXIMETASONE [Suspect]
     Active Substance: DESOXIMETASONE
     Route: 050
  372. DESOXIMETASONE [Suspect]
     Active Substance: DESOXIMETASONE
     Route: 048
  373. DESOXIMETASONE [Suspect]
     Active Substance: DESOXIMETASONE
     Route: 050
  374. DESOXIMETASONE [Suspect]
     Active Substance: DESOXIMETASONE
     Route: 058
  375. DESOXIMETASONE [Suspect]
     Active Substance: DESOXIMETASONE
     Route: 050
  376. DESOXIMETASONE [Suspect]
     Active Substance: DESOXIMETASONE
     Route: 058
  377. DESOXIMETASONE [Suspect]
     Active Substance: DESOXIMETASONE
  378. DESOXIMETASONE [Suspect]
     Active Substance: DESOXIMETASONE
     Route: 058
  379. DESOXIMETASONE [Suspect]
     Active Substance: DESOXIMETASONE
  380. DESOXIMETASONE [Suspect]
     Active Substance: DESOXIMETASONE
     Route: 058
  381. DESOXIMETASONE [Suspect]
     Active Substance: DESOXIMETASONE
  382. DESOXIMETASONE [Suspect]
     Active Substance: DESOXIMETASONE
     Route: 048
  383. DESOXIMETASONE [Suspect]
     Active Substance: DESOXIMETASONE
  384. DESOXIMETASONE [Suspect]
     Active Substance: DESOXIMETASONE
  385. DESOXIMETASONE [Suspect]
     Active Substance: DESOXIMETASONE
  386. ENBREL [Suspect]
     Active Substance: ETANERCEPT
     Indication: Rheumatoid arthritis
     Route: 058
  387. ENBREL [Suspect]
     Active Substance: ETANERCEPT
     Indication: Psoriatic arthropathy
  388. ENBREL [Suspect]
     Active Substance: ETANERCEPT
     Route: 058
  389. ENBREL [Suspect]
     Active Substance: ETANERCEPT
     Dosage: 50 MG, QW
     Route: 058
  390. ENBREL [Suspect]
     Active Substance: ETANERCEPT
     Route: 058
  391. ENBREL [Suspect]
     Active Substance: ETANERCEPT
     Dosage: 20 MG, QW
     Route: 058
  392. ENBREL [Suspect]
     Active Substance: ETANERCEPT
  393. ENBREL [Suspect]
     Active Substance: ETANERCEPT
     Dosage: 50 MG, QW
     Route: 058
  394. ENBREL [Suspect]
     Active Substance: ETANERCEPT
  395. ENBREL [Suspect]
     Active Substance: ETANERCEPT
     Dosage: 50 MG, QW
     Route: 058
  396. ENBREL [Suspect]
     Active Substance: ETANERCEPT
     Dosage: 100 MG, QD
     Route: 058
  397. ENBREL [Suspect]
     Active Substance: ETANERCEPT
     Dosage: UNK, QW (1 EVERY 1 WEEKS)
  398. ENBREL [Suspect]
     Active Substance: ETANERCEPT
  399. ENBREL [Suspect]
     Active Substance: ETANERCEPT
     Dosage: 20 MG, QD
     Route: 058
  400. ENBREL [Suspect]
     Active Substance: ETANERCEPT
  401. ENBREL [Suspect]
     Active Substance: ETANERCEPT
     Route: 058
  402. ENBREL [Suspect]
     Active Substance: ETANERCEPT
     Dosage: 25 MG, QD
     Route: 048
  403. ENBREL [Suspect]
     Active Substance: ETANERCEPT
     Route: 048
  404. ENBREL [Suspect]
     Active Substance: ETANERCEPT
     Dosage: 100 MG, QD, SUBDERMAL
  405. ENBREL [Suspect]
     Active Substance: ETANERCEPT
  406. ENBREL [Suspect]
     Active Substance: ETANERCEPT
     Route: 058
  407. ENBREL [Suspect]
     Active Substance: ETANERCEPT
  408. ENBREL [Suspect]
     Active Substance: ETANERCEPT
  409. ENBREL [Suspect]
     Active Substance: ETANERCEPT
     Route: 048
  410. ENBREL [Suspect]
     Active Substance: ETANERCEPT
  411. ENBREL [Suspect]
     Active Substance: ETANERCEPT
  412. ENBREL [Suspect]
     Active Substance: ETANERCEPT
     Route: 058
  413. ENBREL [Suspect]
     Active Substance: ETANERCEPT
  414. ENBREL [Suspect]
     Active Substance: ETANERCEPT
  415. ENBREL [Suspect]
     Active Substance: ETANERCEPT
     Route: 058
  416. ENBREL [Suspect]
     Active Substance: ETANERCEPT
     Route: 058
  417. ENBREL [Suspect]
     Active Substance: ETANERCEPT
     Route: 058
  418. ENBREL [Suspect]
     Active Substance: ETANERCEPT
  419. ENBREL [Suspect]
     Active Substance: ETANERCEPT
  420. ENBREL [Suspect]
     Active Substance: ETANERCEPT
  421. ENBREL [Suspect]
     Active Substance: ETANERCEPT
     Dosage: 20 MG, QW
     Route: 058
  422. ENBREL [Suspect]
     Active Substance: ETANERCEPT
     Route: 058
  423. ENBREL [Suspect]
     Active Substance: ETANERCEPT
  424. FLUMETHASONE PIVALATE [Suspect]
     Active Substance: FLUMETHASONE PIVALATE
     Indication: Product used for unknown indication
     Route: 050
  425. FLUMETHASONE PIVALATE [Suspect]
     Active Substance: FLUMETHASONE PIVALATE
     Indication: Drug ineffective
     Route: 058
  426. FLUMETHASONE PIVALATE [Suspect]
     Active Substance: FLUMETHASONE PIVALATE
     Indication: Rheumatoid arthritis
     Route: 050
  427. FLUMETHASONE PIVALATE [Suspect]
     Active Substance: FLUMETHASONE PIVALATE
     Route: 050
  428. FOSAMAX [Suspect]
     Active Substance: ALENDRONATE SODIUM
     Indication: Rheumatoid arthritis
     Route: 050
  429. FOSAMAX [Suspect]
     Active Substance: ALENDRONATE SODIUM
     Indication: Product used for unknown indication
     Route: 058
  430. FOSAMAX [Suspect]
     Active Substance: ALENDRONATE SODIUM
     Route: 050
  431. FOSAMAX [Suspect]
     Active Substance: ALENDRONATE SODIUM
     Route: 048
  432. FOSAMAX [Suspect]
     Active Substance: ALENDRONATE SODIUM
     Route: 048
  433. FOSAMAX [Suspect]
     Active Substance: ALENDRONATE SODIUM
  434. FOSAMAX [Suspect]
     Active Substance: ALENDRONATE SODIUM
  435. FOSAMAX [Suspect]
     Active Substance: ALENDRONATE SODIUM
  436. GOLD [Suspect]
     Active Substance: GOLD
     Indication: Product used for unknown indication
  437. HUMIRA [Suspect]
     Active Substance: ADALIMUMAB
     Indication: Rheumatoid arthritis
     Route: 050
  438. HUMIRA [Suspect]
     Active Substance: ADALIMUMAB
     Indication: Psoriatic arthropathy
     Route: 057
  439. HUMIRA [Suspect]
     Active Substance: ADALIMUMAB
     Route: 050
  440. HUMIRA [Suspect]
     Active Substance: ADALIMUMAB
  441. HUMIRA [Suspect]
     Active Substance: ADALIMUMAB
     Route: 050
  442. HUMIRA [Suspect]
     Active Substance: ADALIMUMAB
  443. HUMIRA [Suspect]
     Active Substance: ADALIMUMAB
  444. HUMIRA [Suspect]
     Active Substance: ADALIMUMAB
     Route: 050
  445. HUMIRA [Suspect]
     Active Substance: ADALIMUMAB
     Route: 050
  446. HUMIRA [Suspect]
     Active Substance: ADALIMUMAB
     Dosage: 40 MG, QD
     Route: 050
  447. HUMIRA [Suspect]
     Active Substance: ADALIMUMAB
     Route: 050
  448. HUMIRA [Suspect]
     Active Substance: ADALIMUMAB
     Route: 050
  449. HUMIRA [Suspect]
     Active Substance: ADALIMUMAB
  450. HUMIRA [Suspect]
     Active Substance: ADALIMUMAB
     Dosage: 4 MG, QD
  451. HUMIRA [Suspect]
     Active Substance: ADALIMUMAB
  452. HYDROXYCHLOROQUINE [Suspect]
     Active Substance: HYDROXYCHLOROQUINE
     Indication: Rheumatoid arthritis
     Dosage: 1 DOSAGE FORM, QD
     Route: 058
  453. HYDROXYCHLOROQUINE [Suspect]
     Active Substance: HYDROXYCHLOROQUINE
     Dosage: 1 DOSAGE FORM, QD
     Route: 048
  454. HYDROXYCHLOROQUINE [Suspect]
     Active Substance: HYDROXYCHLOROQUINE
     Dosage: 400 MG, QD
  455. HYDROXYCHLOROQUINE [Suspect]
     Active Substance: HYDROXYCHLOROQUINE
     Dosage: 400 MG, QD
  456. HYDROXYCHLOROQUINE [Suspect]
     Active Substance: HYDROXYCHLOROQUINE
     Dosage: DURATION 4 MONTHS
     Route: 050
  457. HYDROXYCHLOROQUINE [Suspect]
     Active Substance: HYDROXYCHLOROQUINE
     Dosage: 1 DOSAGE FORM, QD
     Route: 048
  458. HYDROXYCHLOROQUINE [Suspect]
     Active Substance: HYDROXYCHLOROQUINE
     Dosage: DURATION 4 MONTHS
     Route: 058
  459. HYDROXYCHLOROQUINE [Suspect]
     Active Substance: HYDROXYCHLOROQUINE
     Dosage: DURATION 4 MONTHS
  460. HYDROXYCHLOROQUINE [Suspect]
     Active Substance: HYDROXYCHLOROQUINE
     Dosage: DURATION 4 MONTHS
  461. HYDROXYCHLOROQUINE [Suspect]
     Active Substance: HYDROXYCHLOROQUINE
     Dosage: 400 MG, QD
     Route: 048
  462. HYDROXYCHLOROQUINE [Suspect]
     Active Substance: HYDROXYCHLOROQUINE
     Route: 050
  463. HYDROXYCHLOROQUINE [Suspect]
     Active Substance: HYDROXYCHLOROQUINE
     Route: 058
  464. HYDROXYCHLOROQUINE [Suspect]
     Active Substance: HYDROXYCHLOROQUINE
     Route: 048
  465. HYDROXYCHLOROQUINE [Suspect]
     Active Substance: HYDROXYCHLOROQUINE
  466. HYDROXYCHLOROQUINE [Suspect]
     Active Substance: HYDROXYCHLOROQUINE
     Dosage: UNK, QD
     Route: 050
  467. HYDROXYCHLOROQUINE [Suspect]
     Active Substance: HYDROXYCHLOROQUINE
     Route: 050
  468. HYDROXYCHLOROQUINE [Suspect]
     Active Substance: HYDROXYCHLOROQUINE
     Dosage: 40 MG, QD
     Route: 050
  469. HYDROXYCHLOROQUINE [Suspect]
     Active Substance: HYDROXYCHLOROQUINE
     Route: 050
  470. HYDROXYCHLOROQUINE [Suspect]
     Active Substance: HYDROXYCHLOROQUINE
     Dosage: 40 MG, QD, URETHRAL USE
  471. HYDROXYCHLOROQUINE [Suspect]
     Active Substance: HYDROXYCHLOROQUINE
  472. HYDROXYCHLOROQUINE [Suspect]
     Active Substance: HYDROXYCHLOROQUINE
  473. HYDROXYCHLOROQUINE [Suspect]
     Active Substance: HYDROXYCHLOROQUINE
     Dosage: 40 MG, QD
  474. HYDROXYCHLOROQUINE [Suspect]
     Active Substance: HYDROXYCHLOROQUINE
     Route: 048
  475. HYDROXYCHLOROQUINE [Suspect]
     Active Substance: HYDROXYCHLOROQUINE
     Route: 048
  476. HYDROXYCHLOROQUINE [Suspect]
     Active Substance: HYDROXYCHLOROQUINE
     Dosage: 400 MG, QD
     Route: 048
  477. HYDROXYCHLOROQUINE SULFATE [Suspect]
     Active Substance: HYDROXYCHLOROQUINE SULFATE
     Indication: Rheumatoid arthritis
  478. HYDROXYCHLOROQUINE SULFATE [Suspect]
     Active Substance: HYDROXYCHLOROQUINE SULFATE
     Route: 048
  479. HYDROXYCHLOROQUINE SULFATE [Suspect]
     Active Substance: HYDROXYCHLOROQUINE SULFATE
     Route: 050
  480. HYDROXYCHLOROQUINE SULFATE [Suspect]
     Active Substance: HYDROXYCHLOROQUINE SULFATE
     Route: 048
  481. HYDROXYCHLOROQUINE SULFATE [Suspect]
     Active Substance: HYDROXYCHLOROQUINE SULFATE
     Dosage: 400 MG, QD
     Route: 048
  482. HYDROXYCHLOROQUINE SULFATE [Suspect]
     Active Substance: HYDROXYCHLOROQUINE SULFATE
     Dosage: 400 MG, QD, URETHRAL USE
  483. HYDROXYCHLOROQUINE SULFATE [Suspect]
     Active Substance: HYDROXYCHLOROQUINE SULFATE
  484. HYDROXYCHLOROQUINE SULFATE [Suspect]
     Active Substance: HYDROXYCHLOROQUINE SULFATE
  485. HYDROXYCHLOROQUINE SULFATE [Suspect]
     Active Substance: HYDROXYCHLOROQUINE SULFATE
     Route: 050
  486. HYDROXYCHLOROQUINE SULFATE [Suspect]
     Active Substance: HYDROXYCHLOROQUINE SULFATE
  487. HYDROXYCHLOROQUINE SULFATE [Suspect]
     Active Substance: HYDROXYCHLOROQUINE SULFATE
  488. HYDROXYCHLOROQUINE SULFATE [Suspect]
     Active Substance: HYDROXYCHLOROQUINE SULFATE
     Route: 050
  489. HYDROXYCHLOROQUINE SULFATE [Suspect]
     Active Substance: HYDROXYCHLOROQUINE SULFATE
     Dosage: 40 MG, QD, URETHRAL USE
  490. HYDROXYCHLOROQUINE SULFATE [Suspect]
     Active Substance: HYDROXYCHLOROQUINE SULFATE
  491. HYDROXYCHLOROQUINE SULFATE [Suspect]
     Active Substance: HYDROXYCHLOROQUINE SULFATE
     Dosage: 400 MG, QD
     Route: 050
  492. HYDROXYCHLOROQUINE SULFATE [Suspect]
     Active Substance: HYDROXYCHLOROQUINE SULFATE
     Dosage: 40 MG, QD
     Route: 050
  493. HYDROXYCHLOROQUINE SULFATE [Suspect]
     Active Substance: HYDROXYCHLOROQUINE SULFATE
     Route: 050
  494. HYDROXYCHLOROQUINE SULFATE [Suspect]
     Active Substance: HYDROXYCHLOROQUINE SULFATE
  495. INFLIXIMAB [Suspect]
     Active Substance: INFLIXIMAB
     Indication: Rheumatoid arthritis
     Route: 042
  496. INFLIXIMAB [Suspect]
     Active Substance: INFLIXIMAB
     Indication: Psoriatic arthropathy
     Route: 050
  497. INFLIXIMAB [Suspect]
     Active Substance: INFLIXIMAB
  498. INFLIXIMAB [Suspect]
     Active Substance: INFLIXIMAB
  499. METHYLPREDNISOLONE [Suspect]
     Active Substance: METHYLPREDNISOLONE
     Indication: Product used for unknown indication
  500. MINOCYCLINE [Suspect]
     Active Substance: MINOCYCLINE HYDROCHLORIDE
     Indication: Product used for unknown indication
  501. MINOCYCLINE HYDROCHLORIDE [Suspect]
     Active Substance: MINOCYCLINE HYDROCHLORIDE
     Indication: Product used for unknown indication
  502. MYOCHRYSINE [Suspect]
     Active Substance: GOLD SODIUM THIOMALATE
     Indication: Rheumatoid arthritis
  503. NAPROXEN [Suspect]
     Active Substance: NAPROXEN
     Indication: Rheumatoid arthritis
  504. ORENCIA [Suspect]
     Active Substance: ABATACEPT
     Indication: Rheumatoid arthritis
     Route: 042
  505. ORENCIA [Suspect]
     Active Substance: ABATACEPT
  506. ORENCIA [Suspect]
     Active Substance: ABATACEPT
  507. ORENCIA [Suspect]
     Active Substance: ABATACEPT
     Route: 050
  508. ORENCIA [Suspect]
     Active Substance: ABATACEPT
  509. ORENCIA [Suspect]
     Active Substance: ABATACEPT
  510. ORENCIA [Suspect]
     Active Substance: ABATACEPT
     Route: 058
  511. ORENCIA [Suspect]
     Active Substance: ABATACEPT
     Dosage: DURATION 4 YEARS
     Route: 058
  512. ORENCIA [Suspect]
     Active Substance: ABATACEPT
     Route: 042
  513. ORENCIA [Suspect]
     Active Substance: ABATACEPT
  514. ORENCIA [Suspect]
     Active Substance: ABATACEPT
     Route: 050
  515. ORENCIA [Suspect]
     Active Substance: ABATACEPT
     Route: 042
  516. OTEZLA [Suspect]
     Active Substance: APREMILAST
     Indication: Product used for unknown indication
     Dosage: 3 MG
     Route: 050
  517. OTEZLA [Suspect]
     Active Substance: APREMILAST
     Indication: Rheumatoid arthritis
     Dosage: 3 MG, BID
  518. OTEZLA [Suspect]
     Active Substance: APREMILAST
     Dosage: 6 MG, QD
  519. PERIOGARD [Suspect]
     Active Substance: CHLORHEXIDINE GLUCONATE
     Indication: Product used for unknown indication
  520. PHTHALYLSULFATHIAZOLE [Suspect]
     Active Substance: PHTHALYLSULFATHIAZOLE
     Indication: Rheumatoid arthritis
     Route: 058
  521. PHTHALYLSULFATHIAZOLE [Suspect]
     Active Substance: PHTHALYLSULFATHIAZOLE
  522. PHTHALYLSULFATHIAZOLE [Suspect]
     Active Substance: PHTHALYLSULFATHIAZOLE
  523. PHTHALYLSULFATHIAZOLE [Suspect]
     Active Substance: PHTHALYLSULFATHIAZOLE
     Route: 042
  524. PHTHALYLSULFATHIAZOLE [Suspect]
     Active Substance: PHTHALYLSULFATHIAZOLE
     Route: 042
  525. PHTHALYLSULFATHIAZOLE [Suspect]
     Active Substance: PHTHALYLSULFATHIAZOLE
     Route: 058
  526. PHTHALYLSULFATHIAZOLE [Suspect]
     Active Substance: PHTHALYLSULFATHIAZOLE
     Route: 048
  527. PHTHALYLSULFATHIAZOLE [Suspect]
     Active Substance: PHTHALYLSULFATHIAZOLE
     Dosage: 1000 MG
     Route: 048
  528. PHTHALYLSULFATHIAZOLE [Suspect]
     Active Substance: PHTHALYLSULFATHIAZOLE
     Dosage: 1000 MG, BID
     Route: 048
  529. PHTHALYLSULFATHIAZOLE [Suspect]
     Active Substance: PHTHALYLSULFATHIAZOLE
     Route: 048
  530. PHTHALYLSULFATHIAZOLE [Suspect]
     Active Substance: PHTHALYLSULFATHIAZOLE
  531. PHTHALYLSULFATHIAZOLE [Suspect]
     Active Substance: PHTHALYLSULFATHIAZOLE
  532. CHOLECALCIFEROL [Concomitant]
     Active Substance: CHOLECALCIFEROL
     Indication: Product used for unknown indication
  533. CYANOCOBALAMIN [Concomitant]
     Active Substance: CYANOCOBALAMIN
     Indication: Product used for unknown indication
  534. CYANOCOBALAMIN [Concomitant]
     Active Substance: CYANOCOBALAMIN
     Indication: Product used for unknown indication
  535. ERGOCALCIFEROL [Concomitant]
     Active Substance: ERGOCALCIFEROL
     Indication: Product used for unknown indication
  536. ERGOCALCIFEROL [Concomitant]
     Active Substance: ERGOCALCIFEROL
     Indication: Product used for unknown indication
  537. IBUPROFEN [Concomitant]
     Active Substance: IBUPROFEN
     Indication: Product used for unknown indication
  538. IBUPROFEN [Concomitant]
     Active Substance: IBUPROFEN
     Indication: Product used for unknown indication
  539. DOXYCYCLINE HYCLATE [Suspect]
     Active Substance: DOXYCYCLINE HYCLATE
     Indication: Product used for unknown indication
  540. PREDNISONE [Suspect]
     Active Substance: PREDNISONE
     Indication: Rheumatoid arthritis
     Route: 050
  541. PREDNISONE [Suspect]
     Active Substance: PREDNISONE
     Route: 048
  542. LORAZEPAM [Concomitant]
     Active Substance: LORAZEPAM
     Indication: Product used for unknown indication
  543. LORAZEPAM [Concomitant]
     Active Substance: LORAZEPAM
     Indication: Product used for unknown indication
  544. OXYCODONE TEREPHTHALATE [Suspect]
     Active Substance: OXYCODONE TEREPHTHALATE
     Indication: Product used for unknown indication
  545. MAGNESIUM [Concomitant]
     Active Substance: MAGNESIUM
     Indication: Product used for unknown indication
  546. PREDNISOLONE [Concomitant]
     Active Substance: PREDNISOLONE
     Indication: Product used for unknown indication
  547. PREDNISOLONE [Concomitant]
     Active Substance: PREDNISOLONE
     Indication: Product used for unknown indication
  548. QUETIAPINE FUMARATE [Concomitant]
     Active Substance: QUETIAPINE FUMARATE
     Indication: Product used for unknown indication
  549. QUETIAPINE FUMARATE [Concomitant]
     Active Substance: QUETIAPINE FUMARATE
     Indication: Product used for unknown indication
  550. RISEDRONATE SODIUM [Concomitant]
     Active Substance: RISEDRONATE SODIUM
     Indication: Product used for unknown indication
  551. RISEDRONATE SODIUM [Concomitant]
     Active Substance: RISEDRONATE SODIUM
     Indication: Product used for unknown indication
  552. SULFASALAZINE [Concomitant]
     Active Substance: SULFASALAZINE
     Indication: Product used for unknown indication
  553. SULFASALAZINE [Concomitant]
     Active Substance: SULFASALAZINE
     Indication: Product used for unknown indication
  554. FISH OIL [Concomitant]
     Active Substance: FISH OIL
     Indication: Product used for unknown indication
  555. FISH OIL [Concomitant]
     Active Substance: FISH OIL
     Indication: Product used for unknown indication
  556. VITAMIN D3 [Concomitant]
     Active Substance: CHOLECALCIFEROL
     Indication: Product used for unknown indication
  557. VITAMIN D3 [Concomitant]
     Active Substance: CHOLECALCIFEROL
     Indication: Product used for unknown indication
  558. TUMS ULTRA [Suspect]
     Active Substance: CALCIUM CARBONATE
     Indication: Product used for unknown indication
  559. TUMS ULTRA [Suspect]
     Active Substance: CALCIUM CARBONATE
  560. APREPITANT [Suspect]
     Active Substance: APREPITANT
     Indication: Product used for unknown indication
     Route: 050
  561. APREPITANT [Suspect]
     Active Substance: APREPITANT
  562. VITAMIN C [Suspect]
     Active Substance: ASCORBIC ACID
     Indication: Product used for unknown indication
  563. CALCIUM GLUCONATE [Suspect]
     Active Substance: CALCIUM GLUCONATE
     Indication: Product used for unknown indication

REACTIONS (31)
  - Liver injury [Fatal]
  - Prescribed underdose [Fatal]
  - Dizziness [Fatal]
  - Prescribed overdose [Fatal]
  - Asthenia [Fatal]
  - Urticaria [Fatal]
  - Nasopharyngitis [Fatal]
  - Weight increased [Fatal]
  - Peripheral venous disease [Fatal]
  - Confusional state [Fatal]
  - Peripheral swelling [Fatal]
  - Stomatitis [Fatal]
  - Paraesthesia [Fatal]
  - Osteoarthritis [Fatal]
  - Obesity [Fatal]
  - Blood cholesterol increased [Fatal]
  - Hypertension [Fatal]
  - Bursitis [Fatal]
  - Psoriatic arthropathy [Fatal]
  - Rheumatoid arthritis [Fatal]
  - Contusion [Fatal]
  - Product label confusion [Fatal]
  - Dyspepsia [Fatal]
  - Neck pain [Fatal]
  - Off label use [Fatal]
  - Musculoskeletal pain [Fatal]
  - Night sweats [Fatal]
  - Deep vein thrombosis postoperative [Fatal]
  - Gait inability [Fatal]
  - Autoimmune disorder [Fatal]
  - C-reactive protein increased [Fatal]
